FAERS Safety Report 8333218-6 (Version None)
Quarter: 2012Q2

REPORT INFORMATION
  Report Type: 
  Country: None (occurrence: None)
  Receive Date: 20120503
  Receipt Date: 20120430
  Transmission Date: 20120825
  Serious: Yes (Other)
  Sender: FDA-Public Use
  Company Number: US-PFIZER INC-2012106296

PATIENT
  Sex: Male
  Weight: 81.633 kg

DRUGS (5)
  1. LYRICA [Suspect]
     Indication: BACK INJURY
     Dosage: 50 MG, 1X/DAY
     Route: 048
     Dates: start: 20120409
  2. BENICAR HCT [Concomitant]
     Indication: HYPERTENSION
     Dosage: UNK
  3. HYDROCODONE BITARTRATE [Suspect]
     Indication: BACK INJURY
     Dosage: 15 MG, 4X/DAY
     Route: 048
     Dates: start: 20111104
  4. HYDROCODONE BITARTRATE [Suspect]
     Indication: BACK PAIN
     Dosage: UNK
     Route: 048
  5. LYRICA [Suspect]
     Indication: BACK PAIN
     Dosage: 100 MG, 1X/DAY
     Route: 048
     Dates: end: 20120426

REACTIONS (5)
  - MUSCLE TWITCHING [None]
  - NAUSEA [None]
  - HAEMATOCHEZIA [None]
  - DIARRHOEA [None]
  - ABDOMINAL PAIN UPPER [None]
